FAERS Safety Report 17767694 (Version 2)
Quarter: 2020Q2

REPORT INFORMATION
  Report Type: Report from Study
  Country: US (occurrence: US)
  Receive Date: 20200511
  Receipt Date: 20200519
  Transmission Date: 20200714
  Serious: No
  Sender: FDA-Public Use
  Company Number: US-ROCHE-2210565

PATIENT
  Sex: Female

DRUGS (4)
  1. ALECENSA [Suspect]
     Active Substance: ALECTINIB HYDROCHLORIDE
     Indication: BACK PAIN
  2. ALECENSA [Suspect]
     Active Substance: ALECTINIB HYDROCHLORIDE
     Indication: BRONCHIAL CARCINOMA
     Dosage: ON 06/FEB/2018, SHE RECEIVED THERAPY WITH ALECTINIB HYDROCHLORIDE CAPSULE (DOSING REGIMEN NOT REPORT
     Route: 048
  3. ALECENSA [Suspect]
     Active Substance: ALECTINIB HYDROCHLORIDE
     Indication: SLEEP APNOEA SYNDROME
     Dosage: TAKE 4 CAPSULE(S) BY MOUTH TWICE A DAY WITH MEALS
     Route: 048
  4. ALECENSA [Suspect]
     Active Substance: ALECTINIB HYDROCHLORIDE
     Indication: LUNG CARCINOMA CELL TYPE UNSPECIFIED STAGE 0

REACTIONS (16)
  - Increased appetite [Not Recovered/Not Resolved]
  - Unevaluable event [Not Recovered/Not Resolved]
  - Peripheral swelling [Unknown]
  - Pain in extremity [Unknown]
  - Dyspnoea [Not Recovered/Not Resolved]
  - Blood glucose decreased [Not Recovered/Not Resolved]
  - Gait disturbance [Unknown]
  - Depression [Not Recovered/Not Resolved]
  - Cough [Unknown]
  - Weight gain poor [Not Recovered/Not Resolved]
  - Intentional product use issue [Unknown]
  - Wheezing [Not Recovered/Not Resolved]
  - Feeling hot [Not Recovered/Not Resolved]
  - Constipation [Unknown]
  - Off label use [Unknown]
  - Neuralgia [Unknown]
